FAERS Safety Report 10549176 (Version 1)
Quarter: 2014Q4

REPORT INFORMATION
  Report Type: Spontaneous
  Country: US (occurrence: None)
  Receive Date: 20141016
  Receipt Date: 20141016
  Transmission Date: 20150529
  Serious: No
  Sender: FDA-Public Use
  Company Number: CABO-14004402

PATIENT
  Age: 49 Year
  Sex: Male

DRUGS (2)
  1. ZOLPIDEM [Concomitant]
     Active Substance: ZOLPIDEM\ZOLPIDEM TARTRATE
  2. COMETRIQ [Suspect]
     Active Substance: CABOZANTINIB S-MALATE
     Indication: THYROID CANCER
     Route: 048
     Dates: start: 20140609, end: 2014

REACTIONS (6)
  - Diarrhoea [None]
  - Fatigue [None]
  - Contusion [None]
  - Dysphonia [None]
  - Pain in extremity [None]
  - Blister [None]

NARRATIVE: CASE EVENT DATE: 20140610
